FAERS Safety Report 17146067 (Version 1)
Quarter: 2019Q4

REPORT INFORMATION
  Report Type: Spontaneous
  Country: US (occurrence: US)
  Receive Date: 20191212
  Receipt Date: 20191212
  Transmission Date: 20200122
  Serious: No
  Sender: FDA-Public Use
  Company Number: US-GLENMARK PHARMACEUTICALS-2019GMK042750

PATIENT

DRUGS (1)
  1. OMEPRAZOLE. [Suspect]
     Active Substance: OMEPRAZOLE
     Indication: DYSPEPSIA
     Dosage: UNK UNK, HS (ONCE AT NIGHT)
     Route: 065

REACTIONS (4)
  - Bladder disorder [Unknown]
  - Pollakiuria [Unknown]
  - Diarrhoea [Unknown]
  - Incorrect product administration duration [Unknown]
